FAERS Safety Report 10191191 (Version 1)
Quarter: 2014Q2

REPORT INFORMATION
  Report Type: Spontaneous
  Country: GB (occurrence: GB)
  Receive Date: 20140523
  Receipt Date: 20140523
  Transmission Date: 20141212
  Serious: Yes (Life-Threatening, Hospitalization, Other)
  Sender: FDA-Public Use
  Company Number: GB-ACCORD-023813

PATIENT
  Age: 46 Year
  Sex: Male
  Weight: 102 kg

DRUGS (4)
  1. FLUOROURACIL [Suspect]
     Indication: CHEMOTHERAPY
  2. ASPIRIN [Concomitant]
  3. BISOPROLOL [Concomitant]
  4. RAMIPRIL [Concomitant]

REACTIONS (2)
  - Atrial fibrillation [Recovered/Resolved]
  - Acute myocardial infarction [Recovered/Resolved]
